FAERS Safety Report 19324851 (Version 2)
Quarter: 2021Q2

REPORT INFORMATION
  Report Type: Report from Study
  Country: None (occurrence: CA)
  Receive Date: 20210528
  Receipt Date: 20210531
  Transmission Date: 20210717
  Serious: Yes (Hospitalization, Other)
  Sender: FDA-Public Use
  Company Number: CA-ABBVIE-21K-028-3925287-00

PATIENT
  Sex: Female

DRUGS (1)
  1. HUMIRA [Suspect]
     Active Substance: ADALIMUMAB
     Indication: PSORIATIC ARTHROPATHY
     Route: 058
     Dates: start: 20170717, end: 202005

REACTIONS (11)
  - Cardiac disorder [Unknown]
  - Arthritis [Not Recovered/Not Resolved]
  - Coronary artery occlusion [Recovered/Resolved]
  - Cardiac dysfunction [Recovering/Resolving]
  - Unevaluable event [Unknown]
  - Renal disorder [Unknown]
  - Weight decreased [Not Recovered/Not Resolved]
  - Vomiting [Recovered/Resolved]
  - Cardiac failure chronic [Recovered/Resolved]
  - Liver disorder [Unknown]
  - Nausea [Recovered/Resolved]

NARRATIVE: CASE EVENT DATE: 2020
